FAERS Safety Report 9422198 (Version 2)
Quarter: 2013Q3

REPORT INFORMATION
  Report Type: Report from Study
  Country: US (occurrence: US)
  Receive Date: 20130726
  Receipt Date: 20130802
  Transmission Date: 20140515
  Serious: Yes (Other)
  Sender: FDA-Public Use
  Company Number: US-BAYER-2013-087588

PATIENT
  Sex: Female
  Weight: 66.67 kg

DRUGS (1)
  1. MIRENA [Suspect]
     Dosage: 20 MCG/24HR, CONT
     Route: 015
     Dates: start: 201110

REACTIONS (13)
  - Haemorrhagic ovarian cyst [None]
  - Genital haemorrhage [None]
  - Pelvic haemorrhage [None]
  - Weight increased [None]
  - Headache [Recovered/Resolved]
  - Mood swings [Recovered/Resolved]
  - Depression [None]
  - Abdominal distension [None]
  - Pain [None]
  - Feeling abnormal [None]
  - Abdominal pain lower [None]
  - Ovarian cyst ruptured [None]
  - Breast tenderness [None]
